FAERS Safety Report 7808840-3 (Version None)
Quarter: 2011Q4

REPORT INFORMATION
  Report Type: 
  Country: None (occurrence: None)
  Receive Date: 20111012
  Receipt Date: 20111004
  Transmission Date: 20120403
  Serious: Yes (Other)
  Sender: FDA-Public Use
  Company Number: CA-UCBSA-042768

PATIENT
  Sex: Male

DRUGS (4)
  1. CARBAMAZEPINE [Concomitant]
     Dosage: 1200 MG DAILY
  2. VIMPAT [Suspect]
     Dates: start: 20110901, end: 20110901
  3. CLOBAZAM [Concomitant]
     Dosage: 10 MG DAILY
  4. VIMPAT [Suspect]
     Dates: start: 20110901, end: 20110101

REACTIONS (2)
  - ROAD TRAFFIC ACCIDENT [None]
  - CONVULSION [None]
